FAERS Safety Report 9296906 (Version 1)
Quarter: 2013Q2

REPORT INFORMATION
  Report Type: Report from Study
  Country: US (occurrence: US)
  Receive Date: 20130517
  Receipt Date: 20130517
  Transmission Date: 20140414
  Serious: Yes (Hospitalization)
  Sender: FDA-Public Use
  Company Number: US-ROCHE-1225528

PATIENT
  Sex: Female

DRUGS (3)
  1. LUCENTIS [Suspect]
     Indication: DIABETIC RETINOPATHY
     Dosage: AS REQUIRED
     Route: 050
  2. AVASTIN [Suspect]
     Indication: DIABETIC RETINOPATHY
     Dosage: AS REQUIRED
     Route: 050
     Dates: start: 2009
  3. AVASTIN [Suspect]
     Indication: OFF LABEL USE

REACTIONS (2)
  - Subarachnoid haemorrhage [Recovered/Resolved]
  - Haemangioma [Unknown]
